FAERS Safety Report 6019020-9 (Version None)
Quarter: 2008Q4

REPORT INFORMATION
  Report Type: 
  Country: None (occurrence: None)
  Receive Date: 20081221
  Receipt Date: 20081221
  Transmission Date: 20090506
  Serious: Yes (Hospitalization)
  Sender: FDA-Public Use
  Company Number: None

PATIENT
  Age: 82 Year
  Sex: Female
  Weight: 49.8957 kg

DRUGS (1)
  1. DOXYCYCLINE UNKNOWN [Suspect]
     Indication: BLEPHARITIS
     Dosage: 100 MG BID PO
     Route: 048
     Dates: start: 20081120, end: 20081212

REACTIONS (2)
  - CONSTIPATION [None]
  - DYSURIA [None]
